FAERS Safety Report 11633918 (Version 1)
Quarter: 2015Q4

REPORT INFORMATION
  Report Type: Spontaneous
  Country: US (occurrence: US)
  Receive Date: 20151015
  Receipt Date: 20151015
  Transmission Date: 20160304
  Serious: No
  Sender: FDA-Public Use
  Company Number: US-GLAXOSMITHKLINE-US2015GSK144560

PATIENT
  Sex: Male

DRUGS (11)
  1. AZITHROMYCIN [Suspect]
     Active Substance: AZITHROMYCIN ANHYDROUS
  2. LISINOPRIL HCTZ [Suspect]
     Active Substance: HYDROCHLOROTHIAZIDE\LISINOPRIL
  3. CYCLOBENZAPRINE HYDROCHLORIDE. [Suspect]
     Active Substance: CYCLOBENZAPRINE HYDROCHLORIDE
  4. PRAVASTATIN [Suspect]
     Active Substance: PRAVASTATIN\PRAVASTATIN SODIUM
  5. ASPIRIN EC [Suspect]
     Active Substance: ASPIRIN
  6. FLEXERIL [Suspect]
     Active Substance: CYCLOBENZAPRINE HYDROCHLORIDE
  7. DILANTIN [Suspect]
     Active Substance: PHENYTOIN
  8. AMITRIPTYLINE [Suspect]
     Active Substance: AMITRIPTYLINE
  9. AMOXICILLIN. [Suspect]
     Active Substance: AMOXICILLIN
  10. FLONASE [Suspect]
     Active Substance: FLUTICASONE PROPIONATE
  11. BACTRIM [Suspect]
     Active Substance: SULFAMETHOXAZOLE\TRIMETHOPRIM

REACTIONS (1)
  - Drug hypersensitivity [Unknown]
